FAERS Safety Report 6626240-9 (Version None)
Quarter: 2010Q1

REPORT INFORMATION
  Report Type: 
  Country: None (occurrence: None)
  Receive Date: 20100310
  Receipt Date: 20100309
  Transmission Date: 20100710
  Serious: Yes (Hospitalization)
  Sender: FDA-Public Use
  Company Number: FR-WYE-G05712210

PATIENT
  Sex: Male

DRUGS (16)
  1. TAZOCILLINE [Suspect]
     Indication: SKIN INFECTION
     Dosage: UNKNOWN
     Route: 042
     Dates: start: 20091110, end: 20091116
  2. TRAMADOL HCL [Suspect]
     Dosage: STRENGTH 100 MG; TOTAL DAILY DOSE UNKNOWN
     Route: 048
     Dates: start: 20091115, end: 20091115
  3. FOSFOCINE [Suspect]
     Indication: SKIN INFECTION
     Dosage: UNKNOWN
     Route: 042
     Dates: start: 20091110, end: 20091116
  4. SERESTA [Concomitant]
     Dosage: STRENGTH 50 MG; TOTAL DAILY DOSE UNKNOWN
     Route: 048
  5. XATRAL [Concomitant]
     Dosage: UNKNOWN
     Route: 048
  6. HEMIGOXINE NATIVELLE [Concomitant]
     Dosage: UNKNOWN
     Route: 048
  7. SEROPLEX [Concomitant]
     Dosage: UNKNOWN
     Route: 048
  8. BUMEX [Concomitant]
     Indication: HYPERTENSION
     Dosage: UNKNOWN
     Route: 048
  9. INSULIN [Concomitant]
     Indication: INSULIN-REQUIRING TYPE 2 DIABETES MELLITUS
     Dosage: UNKNOWN
     Route: 058
  10. DOLIPRANE [Concomitant]
     Dosage: UNKNOWN
     Route: 048
  11. LYRICA [Concomitant]
     Dosage: STRENGTH 75 MG; TOTAL DAILY DOSE UNKNOWN
     Route: 048
  12. TRIATEC [Concomitant]
     Indication: HYPERTENSION
     Dosage: UNKNOWN
     Route: 048
  13. TARDYFERON [Concomitant]
     Indication: ANAEMIA
     Dosage: UNKNOWN
     Route: 048
  14. TRAMADOL HYDROCHLORIDE [Suspect]
     Dosage: UNKNOWN
     Route: 048
     Dates: start: 20091106, end: 20091115
  15. LOVENOX [Concomitant]
     Dosage: UNKNOWN
     Route: 058
     Dates: start: 20091107
  16. CIPROFLOXACIN HCL [Suspect]
     Dosage: UNKNOWN
     Route: 048
     Dates: start: 20091113, end: 20091115

REACTIONS (1)
  - MYOCLONUS [None]
